FAERS Safety Report 5474001-9 (Version None)
Quarter: 2007Q3

REPORT INFORMATION
  Report Type: 
  Country: None (occurrence: None)
  Receive Date: 20070830
  Receipt Date: 20070628
  Transmission Date: 20080115
  Serious: Yes (Life-Threatening, Other)
  Sender: FDA-Public Use
  Company Number: 242835

PATIENT
  Age: 45 Year
  Sex: Female

DRUGS (8)
  1. XOLAIR [Suspect]
     Indication: ASTHMA
     Dosage: 225 MG, Q2W, SUBCUTANEOUS, Q4W
     Route: 058
     Dates: start: 20070207
  2. ADVAIR DISKUS 100/50 [Concomitant]
  3. TIMOPTIC [Concomitant]
  4. ALPHAGAN [Concomitant]
  5. ACIPHEX [Concomitant]
  6. SINGULAIR [Concomitant]
  7. ALLEGRA (FEXOFENADINE HYDROCHLORIDE) [Concomitant]
  8. DIAMOX [Concomitant]

REACTIONS (1)
  - URTICARIA [None]
